FAERS Safety Report 23417602 (Version 1)
Quarter: 2024Q1

REPORT INFORMATION
  Report Type: Spontaneous
  Country: US (occurrence: None)
  Receive Date: 20240118
  Receipt Date: 20240118
  Transmission Date: 20240409
  Serious: Yes (Hospitalization)
  Sender: FDA-Public Use
  Company Number: 2024A009680

PATIENT

DRUGS (1)
  1. CALQUENCE [Suspect]
     Active Substance: ACALABRUTINIB
     Route: 048

REACTIONS (4)
  - Blood potassium decreased [Unknown]
  - Nausea [Unknown]
  - Platelet count decreased [Unknown]
  - Vomiting [Unknown]
